FAERS Safety Report 5612429-4 (Version None)
Quarter: 2008Q1

REPORT INFORMATION
  Report Type: 
  Country: None (occurrence: None)
  Receive Date: 20080204
  Receipt Date: 20080122
  Transmission Date: 20080703
  Serious: Yes (Hospitalization, Other)
  Sender: FDA-Public Use
  Company Number: JP-ROCHE-541873

PATIENT
  Age: 64 Year
  Sex: Male

DRUGS (1)
  1. OSELTAMIVIR [Suspect]
     Route: 048

REACTIONS (4)
  - BLOOD AMYLASE INCREASED [None]
  - DRY THROAT [None]
  - LOSS OF CONSCIOUSNESS [None]
  - TYPE 1 DIABETES MELLITUS [None]
